FAERS Safety Report 5143227-6 (Version None)
Quarter: 2006Q4

REPORT INFORMATION
  Report Type: 
  Country: None (occurrence: None)
  Receive Date: 20061103
  Receipt Date: 20040927
  Transmission Date: 20070319
  Serious: Yes (Death, Hospitalization)
  Sender: FDA-Public Use
  Company Number: US-BRISTOL-MYERS SQUIBB COMPANY-12713673

PATIENT
  Age: 58 Year
  Sex: Female

DRUGS (2)
  1. CETUXIMAB [Suspect]
     Indication: COLORECTAL CANCER METASTATIC
     Dosage: THIS WAS THE PT'S FIRST DOSE.
     Route: 042
     Dates: start: 20040917, end: 20040917
  2. IRINOTECAN HCL [Suspect]
     Indication: COLORECTAL CANCER METASTATIC
     Dosage: THIS WAS THE PATIENT'S FIRST DOSE.
     Route: 042
     Dates: start: 20040917, end: 20040917

REACTIONS (2)
  - COLORECTAL CANCER METASTATIC [None]
  - DEHYDRATION [None]
